FAERS Safety Report 8215875-8 (Version None)
Quarter: 2012Q1

REPORT INFORMATION
  Report Type: 
  Country: None (occurrence: None)
  Receive Date: 20120316
  Receipt Date: 20120308
  Transmission Date: 20120608
  Serious: Yes (Hospitalization, Disabling)
  Sender: FDA-Public Use
  Company Number: US-MERCK-1108USA00185

PATIENT
  Age: 57 Year
  Sex: Female

DRUGS (4)
  1. BONIVA [Suspect]
     Indication: OSTEOPOROSIS
     Route: 048
     Dates: start: 20090101, end: 20091201
  2. FOSAMAX [Suspect]
     Indication: OSTEOPOROSIS
     Route: 048
     Dates: start: 19950101
  3. FOSAMAX [Suspect]
     Route: 048
     Dates: start: 20080901, end: 20081201
  4. VITAMINS (UNSPECIFIED) [Concomitant]
     Route: 065

REACTIONS (35)
  - DEVICE FAILURE [None]
  - LOW TURNOVER OSTEOPATHY [None]
  - CHEST PAIN [None]
  - SCIATICA [None]
  - SPONDYLOLISTHESIS [None]
  - PATHOLOGICAL FRACTURE [None]
  - OSTEOPOROSIS [None]
  - SPLEEN DISORDER [None]
  - DYSPEPSIA [None]
  - FRACTURE DELAYED UNION [None]
  - MIGRAINE [None]
  - HYPERLIPIDAEMIA [None]
  - STRESS [None]
  - MUSCULOSKELETAL PAIN [None]
  - STRESS FRACTURE [None]
  - ACUTE SINUSITIS [None]
  - HERPES ZOSTER [None]
  - JOINT DISLOCATION [None]
  - INTESTINAL OBSTRUCTION [None]
  - PHARYNGITIS [None]
  - HIATUS HERNIA [None]
  - ADVERSE EVENT [None]
  - OSTEOARTHRITIS [None]
  - FRACTURE NONUNION [None]
  - ACUTE STRESS DISORDER [None]
  - FATIGUE [None]
  - SEBORRHOEIC KERATOSIS [None]
  - SPINAL FRACTURE [None]
  - ROAD TRAFFIC ACCIDENT [None]
  - CARPAL TUNNEL SYNDROME [None]
  - DEPRESSION [None]
  - INTERVERTEBRAL DISC DEGENERATION [None]
  - CHRONIC SINUSITIS [None]
  - MUSCULOSKELETAL CHEST PAIN [None]
  - GASTRIC DISORDER [None]
